FAERS Safety Report 7321723-0 (Version None)
Quarter: 2011Q1

REPORT INFORMATION
  Report Type: 
  Country: None (occurrence: None)
  Receive Date: 20110228
  Receipt Date: 20100702
  Transmission Date: 20110831
  Serious: Yes (Other)
  Sender: FDA-Public Use
  Company Number: US-PFIZER INC-2010070990

PATIENT
  Age: 49 Year
  Sex: Male

DRUGS (6)
  1. LAMICTAL [Concomitant]
     Dosage: 25 MG, 1X/DAY
     Route: 048
     Dates: start: 20050101
  2. RITALIN [Concomitant]
     Dosage: 10MG AND 5MG AT NOON
     Dates: start: 20080101
  3. GEODON [Suspect]
     Indication: BIPOLAR DISORDER
     Dosage: 120 MG, 1X/DAY
     Route: 048
     Dates: start: 20091001
  4. KLONOPIN [Concomitant]
     Dosage: 0.5 MG, 2X/DAY
     Route: 048
  5. BUSPAR [Concomitant]
     Dosage: 30 MG, 2X/DAY
     Route: 048
     Dates: start: 20080101
  6. ATIVAN [Concomitant]
     Indication: ANXIETY
     Dosage: EVERY 6 HOURS AS NEEDED,
     Route: 048

REACTIONS (1)
  - CHEST PAIN [None]
